FAERS Safety Report 7570680-0 (Version None)
Quarter: 2011Q2

REPORT INFORMATION
  Report Type: 
  Country: None (occurrence: None)
  Receive Date: 20110624
  Receipt Date: 20110502
  Transmission Date: 20111010
  Serious: No
  Sender: FDA-Public Use
  Company Number: US-ALLERGAN-1106021US

PATIENT
  Age: 81 Year
  Sex: Female

DRUGS (6)
  1. LATISSE [Suspect]
     Indication: HYPOTRICHOSIS
  2. MASCARA [Concomitant]
  3. UNSPECIFIED OTC GEL [Concomitant]
  4. EYELINER [Concomitant]
  5. LATISSE [Suspect]
     Indication: GROWTH OF EYELASHES
  6. LATISSE [Suspect]
     Indication: EYELASH DISCOLOURATION
     Dosage: 1 GTT, QHS
     Route: 061

REACTIONS (1)
  - PHOTOPHOBIA [None]
